FAERS Safety Report 25948792 (Version 1)
Quarter: 2025Q4

REPORT INFORMATION
  Report Type: Spontaneous
  Country: AU (occurrence: AU)
  Receive Date: 20251022
  Receipt Date: 20251022
  Transmission Date: 20260117
  Serious: Yes (Hospitalization, Other)
  Sender: NOVO NORDISK
  Company Number: AU-NOVOPROD-1540249

PATIENT
  Age: 6 Year
  Sex: Female
  Weight: 10 kg

DRUGS (1)
  1. INSULIN ASPART [Suspect]
     Active Substance: INSULIN ASPART
     Indication: Product used for unknown indication
     Dosage: PRESCRIBED 10ML OF 100 UNITS/ML

REACTIONS (1)
  - Intentional product misuse to child [Unknown]

NARRATIVE: CASE EVENT DATE: 20220101
